FAERS Safety Report 21980210 (Version 1)
Quarter: 2023Q1

REPORT INFORMATION
  Report Type: Spontaneous
  Country: RU (occurrence: RU)
  Receive Date: 20230210
  Receipt Date: 20230210
  Transmission Date: 20230418
  Serious: Yes (Hospitalization)
  Sender: FDA-Public Use
  Company Number: RU-drreddys-LIT/RUS/23/0161051

PATIENT
  Age: 62 Year
  Sex: Female

DRUGS (14)
  1. LEVOFLOXACIN [Suspect]
     Active Substance: LEVOFLOXACIN
     Indication: COVID-19
  2. LEVOFLOXACIN [Suspect]
     Active Substance: LEVOFLOXACIN
     Indication: Respiratory failure
  3. DEXAMETHASONE [Suspect]
     Active Substance: DEXAMETHASONE
     Indication: COVID-19
  4. DEXAMETHASONE [Suspect]
     Active Substance: DEXAMETHASONE
     Indication: Respiratory failure
  5. AMOXICILLIN\SULBACTAM [Suspect]
     Active Substance: AMOXICILLIN\SULBACTAM
     Indication: COVID-19
  6. AMOXICILLIN\SULBACTAM [Suspect]
     Active Substance: AMOXICILLIN\SULBACTAM
     Indication: Respiratory failure
  7. LEVILIMAB [Suspect]
     Active Substance: LEVILIMAB
     Indication: COVID-19
     Dosage: ON DAY 5 OF ADMISSION
  8. LEVILIMAB [Suspect]
     Active Substance: LEVILIMAB
     Indication: Respiratory failure
  9. TOCILIZUMAB [Suspect]
     Active Substance: TOCILIZUMAB
     Indication: COVID-19
     Dosage: ON DAY 5 OF ADMISSION
  10. TOCILIZUMAB [Suspect]
     Active Substance: TOCILIZUMAB
     Indication: Respiratory failure
  11. COVID-19 CONVALESCENT PLASMA [Suspect]
     Active Substance: COVID-19 CONVALESCENT PLASMA
     Indication: COVID-19
     Dosage: ON DAY 7 OF ADMISSION
  12. COVID-19 CONVALESCENT PLASMA [Suspect]
     Active Substance: COVID-19 CONVALESCENT PLASMA
     Indication: Respiratory failure
  13. ENOXAPARIN [Concomitant]
     Active Substance: ENOXAPARIN
     Indication: Product used for unknown indication
  14. POLYMYXIN [Concomitant]
     Active Substance: POLYMYXIN
     Indication: Product used for unknown indication

REACTIONS (2)
  - Respiratory failure [Recovering/Resolving]
  - Drug ineffective for unapproved indication [Unknown]
